FAERS Safety Report 6903749-1 (Version None)
Quarter: 2010Q3

REPORT INFORMATION
  Report Type: 
  Country: None (occurrence: None)
  Receive Date: 20100804
  Receipt Date: 20081231
  Transmission Date: 20110219
  Serious: No
  Sender: FDA-Public Use
  Company Number: US-PFIZER INC-2009150768

PATIENT
  Sex: Female

DRUGS (3)
  1. LYRICA [Suspect]
     Indication: NEUROPATHY PERIPHERAL
     Dates: start: 20081205, end: 20081216
  2. MONOPRIL [Concomitant]
     Indication: CARDIAC DISORDER
     Dosage: UNK
  3. VALSARTAN [Concomitant]
     Dosage: UNK

REACTIONS (7)
  - COUGH [None]
  - MALAISE [None]
  - MYALGIA [None]
  - OEDEMA PERIPHERAL [None]
  - SWELLING FACE [None]
  - TREMOR [None]
  - UNEVALUABLE EVENT [None]
